FAERS Safety Report 17481718 (Version 4)
Quarter: 2020Q2

REPORT INFORMATION
  Report Type: Spontaneous
  Country: JP (occurrence: JP)
  Receive Date: 20200302
  Receipt Date: 20200601
  Transmission Date: 20200713
  Serious: Yes (Death, Hospitalization, Other)
  Sender: FDA-Public Use
  Company Number: JP-GLAXOSMITHKLINE-JP2020JPN034412

PATIENT
  Age: 65 Year
  Sex: Male
  Weight: 68 kg

DRUGS (4)
  1. RHEUMATREX CAPSULES [Concomitant]
     Indication: SYSTEMIC LUPUS ERYTHEMATOSUS
     Dosage: 12 MG, PER WEEK
     Dates: start: 20190607, end: 20200201
  2. PROGRAF [Concomitant]
     Active Substance: TACROLIMUS
     Indication: SYSTEMIC LUPUS ERYTHEMATOSUS
     Dosage: 1 MG, 1D
     Dates: start: 20200203, end: 20200212
  3. BENLYSTA [Suspect]
     Active Substance: BELIMUMAB
     Indication: SYSTEMIC LUPUS ERYTHEMATOSUS
     Dosage: 200 MG
     Route: 058
     Dates: start: 20190712, end: 20200207
  4. DECADRON [Concomitant]
     Active Substance: DEXAMETHASONE
     Indication: SYSTEMIC LUPUS ERYTHEMATOSUS
     Dosage: 3.5 MG, 1D
     Dates: start: 20200207, end: 20200212

REACTIONS (7)
  - Blood creatinine increased [Unknown]
  - Enterobacter pneumonia [Fatal]
  - Anuria [Unknown]
  - Blood beta-D-glucan increased [Unknown]
  - Candida pneumonia [Fatal]
  - Pyrexia [Unknown]
  - Hypoxia [Unknown]

NARRATIVE: CASE EVENT DATE: 20200131
